FAERS Safety Report 25839944 (Version 2)
Quarter: 2025Q4

REPORT INFORMATION
  Report Type: Spontaneous
  Country: AU (occurrence: AU)
  Receive Date: 20250924
  Receipt Date: 20251001
  Transmission Date: 20260118
  Serious: Yes (Other)
  Sender: CSL BEHRING
  Company Number: AU-BEH-2025219205

PATIENT
  Age: 11 Year
  Sex: Female
  Weight: 37.2 kg

DRUGS (14)
  1. HUMAN IMMUNOGLOBULIN G [Suspect]
     Active Substance: HUMAN IMMUNOGLOBULIN G
     Indication: Immunodeficiency common variable
     Dosage: 15 G, QMT
     Route: 065
  2. HUMAN IMMUNOGLOBULIN G [Suspect]
     Active Substance: HUMAN IMMUNOGLOBULIN G
     Indication: Haematological malignancy
     Dosage: 15 G, QMT
     Route: 065
  3. HUMAN IMMUNOGLOBULIN G [Suspect]
     Active Substance: HUMAN IMMUNOGLOBULIN G
     Indication: Hypogammaglobulinaemia
     Dosage: 15 G, QMT
     Route: 042
     Dates: start: 20250701, end: 20250701
  4. HUMAN IMMUNOGLOBULIN G [Suspect]
     Active Substance: HUMAN IMMUNOGLOBULIN G
     Dosage: 15 G, QMT
     Route: 042
     Dates: start: 20250701, end: 20250701
  5. HUMAN IMMUNOGLOBULIN G [Suspect]
     Active Substance: HUMAN IMMUNOGLOBULIN G
     Dosage: 15 G, QMT
     Route: 042
     Dates: start: 20250910, end: 20250910
  6. MERCAPTOPURINE [Concomitant]
     Active Substance: MERCAPTOPURINE
     Indication: Acute lymphocytic leukaemia
     Dosage: 6 DF, QW
     Route: 048
  7. METHOTREXATE [Concomitant]
     Active Substance: METHOTREXATE
     Indication: Acute lymphocytic leukaemia
     Dosage: 11.25 MG, QW
     Route: 048
  8. BACTRIM [Concomitant]
     Active Substance: SULFAMETHOXAZOLE\TRIMETHOPRIM
     Indication: Acute lymphocytic leukaemia
     Dosage: 80 MG
     Route: 048
  9. GABAPENTIN [Concomitant]
     Active Substance: GABAPENTIN
     Indication: Neuralgia
     Dosage: 100 MG
     Route: 048
  10. RISPERIDONE [Concomitant]
     Active Substance: RISPERIDONE
     Indication: Autism spectrum disorder
     Dosage: 0.25 MG
     Route: 048
  11. CETIRIZINE [Concomitant]
     Active Substance: CETIRIZINE HYDROCHLORIDE
     Indication: Premedication
  12. ONDANSETRON [Concomitant]
     Active Substance: ONDANSETRON
  13. ACETAMINOPHEN [Concomitant]
     Active Substance: ACETAMINOPHEN
     Indication: Premedication
  14. HYDROCORTISONE [Concomitant]
     Active Substance: HYDROCORTISONE

REACTIONS (11)
  - Petit mal epilepsy [Unknown]
  - Flushing [Unknown]
  - Lip swelling [Unknown]
  - Chest pain [Recovered/Resolved]
  - Back pain [Unknown]
  - Flushing [Unknown]
  - Erythema [Unknown]
  - Rash macular [Unknown]
  - Infusion related reaction [Recovered/Resolved]
  - Feeling hot [Unknown]
  - Malaise [Unknown]

NARRATIVE: CASE EVENT DATE: 20250701
